FAERS Safety Report 17098207 (Version 26)
Quarter: 2022Q2

REPORT INFORMATION
  Report Type: Report from Study
  Country: CN (occurrence: None)
  Receive Date: 20191202
  Receipt Date: 20220628
  Transmission Date: 20220721
  Serious: Yes (Hospitalization)
  Sender: FDA-Public Use
  Company Number: CN-EISAI MEDICAL RESEARCH-EC-2019-066139

PATIENT
  Age: 46 Year
  Sex: Male
  Weight: 75 kg

DRUGS (13)
  1. LENVATINIB [Suspect]
     Active Substance: LENVATINIB
     Indication: Hepatocellular carcinoma
     Route: 048
     Dates: start: 20190910, end: 20191114
  2. LENVATINIB [Suspect]
     Active Substance: LENVATINIB
     Route: 048
     Dates: start: 20191209, end: 20191214
  3. PLACEBO [Suspect]
     Active Substance: UNSPECIFIED INGREDIENT
     Indication: Hepatocellular carcinoma
     Route: 041
     Dates: start: 20190910, end: 20190930
  4. PLACEBO [Suspect]
     Active Substance: UNSPECIFIED INGREDIENT
     Route: 041
     Dates: start: 20191022, end: 20191022
  5. PLACEBO [Suspect]
     Active Substance: UNSPECIFIED INGREDIENT
     Route: 041
     Dates: start: 20191126, end: 20191126
  6. ENTECAVIR [Concomitant]
     Active Substance: ENTECAVIR
     Dates: start: 20190131
  7. AMLODIPINE [Concomitant]
     Active Substance: AMLODIPINE BESYLATE
     Dates: start: 20190923
  8. METOPROLOL SUCCINATE [Concomitant]
     Active Substance: METOPROLOL SUCCINATE
     Dates: start: 20190927
  9. METFORMIN HYDROCHLORIDE [Concomitant]
     Active Substance: METFORMIN HYDROCHLORIDE
     Dates: start: 20190930
  10. ACARBOSE [Concomitant]
     Active Substance: ACARBOSE
     Dates: start: 20190930
  11. SIMVASTATIN [Concomitant]
     Active Substance: SIMVASTATIN
     Dates: start: 20190930, end: 20191125
  12. SAXAGLIPTIN HYDROCHLORIDE [Concomitant]
     Active Substance: SAXAGLIPTIN HYDROCHLORIDE
     Dates: start: 20191021
  13. OZONE [Concomitant]
     Active Substance: OZONE
     Dates: start: 20191022, end: 201911

REACTIONS (1)
  - Hepatic function abnormal [Recovered/Resolved]

NARRATIVE: CASE EVENT DATE: 20191111
